FAERS Safety Report 5768671-5 (Version None)
Quarter: 2008Q2

REPORT INFORMATION
  Report Type: 
  Country: None (occurrence: None)
  Receive Date: 20080612
  Receipt Date: 20080311
  Transmission Date: 20081010
  Serious: No
  Sender: FDA-Public Use
  Company Number: US-ABBOTT-08P-163-0442044-00

PATIENT
  Sex: Female
  Weight: 93.524 kg

DRUGS (3)
  1. HUMIRA [Suspect]
     Indication: RHEUMATOID ARTHRITIS
     Route: 058
     Dates: start: 20070701
  2. HUMIRA [Suspect]
     Route: 058
     Dates: start: 20070401, end: 20070701
  3. MELOXICAM [Concomitant]
     Indication: RHEUMATOID ARTHRITIS
     Route: 048

REACTIONS (3)
  - INJECTION SITE LACERATION [None]
  - JOINT RANGE OF MOTION DECREASED [None]
  - SWELLING [None]
